FAERS Safety Report 7336950-6 (Version None)
Quarter: 2011Q1

REPORT INFORMATION
  Report Type: 
  Country: None (occurrence: None)
  Receive Date: 20110228
  Receipt Date: 20110207
  Transmission Date: 20110831
  Serious: Yes (Other)
  Sender: FDA-Public Use
  Company Number: 2011SP005785

PATIENT
  Age: 64 Year
  Sex: Female
  Weight: 117.4816 kg

DRUGS (5)
  1. DULERA TABLET [Suspect]
     Indication: ASTHMA
     Dosage: ;BID
     Dates: start: 20110101
  2. LYRICA [Suspect]
     Indication: ARTHRALGIA
     Dosage: 225 MG;BID; PO
     Route: 048
  3. LYRICA [Suspect]
     Indication: PAIN IN EXTREMITY
     Dosage: 225 MG;BID; PO
     Route: 048
  4. NORVASC [Concomitant]
  5. PREDNISONE [Suspect]
     Indication: INFECTION
     Dosage: 20 MG; PRN; PO
     Route: 048
     Dates: start: 20100101

REACTIONS (2)
  - WEIGHT INCREASED [None]
  - PNEUMONIA [None]
